FAERS Safety Report 5647410-2 (Version None)
Quarter: 2008Q1

REPORT INFORMATION
  Report Type: 
  Country: None (occurrence: None)
  Receive Date: 20080303
  Receipt Date: 20080227
  Transmission Date: 20080703
  Serious: Yes (Life-Threatening)
  Sender: FDA-Public Use
  Company Number: AU-ASTRAZENECA-2008AP01408

PATIENT
  Age: 90 Year

DRUGS (1)
  1. NAROPIN [Suspect]
     Indication: NERVE BLOCK
     Route: 053

REACTIONS (2)
  - ASPHYXIA [None]
  - RESUSCITATION [None]
